FAERS Safety Report 12150964 (Version 1)
Quarter: 2016Q1

REPORT INFORMATION
  Report Type: Spontaneous
  Country: US (occurrence: US)
  Receive Date: 20160304
  Receipt Date: 20160304
  Transmission Date: 20160526
  Serious: Yes (Other)
  Sender: FDA-Public Use
  Company Number: US-BAYER-2016-042411

PATIENT
  Sex: Female

DRUGS (2)
  1. CORICIDIN HBP COUGH AND COLD [Suspect]
     Active Substance: CHLORPHENIRAMINE MALEATE\DEXTROMETHORPHAN HYDROBROMIDE
  2. CORICIDIN HBP NIGHTTIME [Suspect]
     Active Substance: ACETAMINOPHEN\DEXTROMETHORPHAN HYDROBROMIDE\DOXYLAMINE SUCCINATE

REACTIONS (3)
  - Choking [None]
  - Therapeutic response unexpected [None]
  - Product size issue [None]
